FAERS Safety Report 5084699-5 (Version None)
Quarter: 2006Q3

REPORT INFORMATION
  Report Type: 
  Country: None (occurrence: None)
  Receive Date: 20060818
  Receipt Date: 20060818
  Transmission Date: 20061208
  Serious: No
  Sender: FDA-Public Use
  Company Number: None

PATIENT
  Sex: Male
  Weight: 50.0318 kg

DRUGS (9)
  1. MIRTAZAPINE [Suspect]
     Indication: INCREASED APPETITE
     Dosage: MIRTAZAPINE 15 MG PO
     Route: 048
     Dates: start: 20060521, end: 20060523
  2. MIRTAZAPINE [Suspect]
     Indication: SOMNOLENCE
     Dosage: MIRTAZAPINE 15 MG PO
     Route: 048
     Dates: start: 20060521, end: 20060523
  3. NAFCILLIN SODIUM [Concomitant]
  4. FINASRERIDE [Concomitant]
  5. FOLIC ACID [Concomitant]
  6. MULTIVIT [Concomitant]
  7. THIAMIN [Concomitant]
  8. LORAZEPAM [Concomitant]
  9. PROMETHAZINE [Concomitant]

REACTIONS (3)
  - AGITATION [None]
  - ANXIETY [None]
  - HALLUCINATION [None]
